FAERS Safety Report 16263457 (Version 2)
Quarter: 2020Q2

REPORT INFORMATION
  Report Type: Spontaneous
  Country: MY (occurrence: MY)
  Receive Date: 20190502
  Receipt Date: 20200518
  Transmission Date: 20200713
  Serious: Yes (Death)
  Sender: FDA-Public Use
  Company Number: MY-ROCHE-2310349

PATIENT
  Sex: Female

DRUGS (1)
  1. TECENTRIQ [Suspect]
     Active Substance: ATEZOLIZUMAB
     Indication: TRIPLE NEGATIVE BREAST CANCER
     Route: 042

REACTIONS (3)
  - Death [Fatal]
  - Off label use [Fatal]
  - Product use in unapproved indication [Unknown]
